FAERS Safety Report 10213256 (Version 2)
Quarter: 2014Q3

REPORT INFORMATION
  Report Type: Report from Study
  Country: CA (occurrence: None)
  Receive Date: 20140529
  Receipt Date: 20140919
  Transmission Date: 20150326
  Serious: Yes (Death, Hospitalization)
  Sender: FDA-Public Use
  Company Number: CA-014937

PATIENT
  Age: 59 Year
  Sex: Male

DRUGS (6)
  1. FIRMAGON [Suspect]
     Active Substance: DEGARELIX ACETATE
     Indication: PROSTATE CANCER
     Dosage: 240 MG TOTAL SUBCUTANEOUS?
     Route: 058
     Dates: start: 20140217, end: 20140217
  2. CELEXA [Concomitant]
     Active Substance: CITALOPRAM HYDROBROMIDE
  3. CRESTOR [Concomitant]
     Active Substance: ROSUVASTATIN CALCIUM
  4. ASA [Concomitant]
     Active Substance: ASPIRIN
  5. DILAUDID [Concomitant]
     Active Substance: HYDROMORPHONE HYDROCHLORIDE
  6. GABAPENTIN. [Concomitant]
     Active Substance: GABAPENTIN

REACTIONS (5)
  - Injection site pain [None]
  - Back pain [None]
  - Movement disorder [None]
  - Pain in extremity [None]
  - Abasia [None]

NARRATIVE: CASE EVENT DATE: 20140217
